FAERS Safety Report 6215984-9 (Version None)
Quarter: 2009Q2

REPORT INFORMATION
  Report Type: 
  Country: None (occurrence: None)
  Receive Date: 20090605
  Receipt Date: 20090529
  Transmission Date: 20091009
  Serious: Yes (Other)
  Sender: FDA-Public Use
  Company Number: US-ASTRAZENECA-2009UW14064

PATIENT
  Sex: Female

DRUGS (2)
  1. OMEPRAZOLE [Suspect]
     Indication: GASTROINTESTINAL ULCER HAEMORRHAGE
     Route: 048
  2. NEXIUM [Suspect]
     Indication: GASTROINTESTINAL ULCER HAEMORRHAGE
     Route: 048

REACTIONS (1)
  - GASTRIC ULCER HAEMORRHAGE [None]
